FAERS Safety Report 9844435 (Version 2)
Quarter: 2014Q1

REPORT INFORMATION
  Report Type: Spontaneous
  Country: GB (occurrence: GB)
  Receive Date: 20140127
  Receipt Date: 20140127
  Transmission Date: 20141002
  Serious: Yes (Hospitalization)
  Sender: FDA-Public Use
  Company Number: GB-009507513-1401GBR001667

PATIENT
  Age: 62 Year
  Sex: Male
  Weight: 78 kg

DRUGS (4)
  1. TEMODAL [Suspect]
     Indication: GLIOBLASTOMA
     Dosage: 140 MG, QD
     Route: 048
     Dates: start: 20131127, end: 20131231
  2. TEMODAL [Suspect]
     Indication: RADIOTHERAPY
  3. ACETAMINOPHEN [Concomitant]
     Dosage: 1 G, QD
  4. SULFAMETHOXAZOLE (+) TRIMETHOPRIM [Concomitant]

REACTIONS (6)
  - Hepatic ischaemia [Unknown]
  - Papilloedema [Recovering/Resolving]
  - Vomiting [Recovering/Resolving]
  - Headache [Recovering/Resolving]
  - Liver function test abnormal [Recovering/Resolving]
  - Aspartate aminotransferase abnormal [Recovering/Resolving]
